FAERS Safety Report 6353313-0 (Version None)
Quarter: 2009Q3

REPORT INFORMATION
  Report Type: 
  Country: None (occurrence: None)
  Receive Date: 20090912
  Receipt Date: 20090622
  Transmission Date: 20100115
  Serious: No
  Sender: FDA-Public Use
  Company Number: US-ABBOTT-08P-163-0455599-00

PATIENT
  Sex: Male
  Weight: 102.15 kg

DRUGS (9)
  1. HUMIRA [Suspect]
     Indication: CROHN'S DISEASE
     Dosage: 40 MG/INJECTION, 4 INJECTIONS TOTAL
     Route: 058
     Dates: start: 20070701, end: 20070701
  2. HUMIRA [Suspect]
     Dosage: 40 MG/INJECTION, 2 INJECTIONS TOTAL
     Route: 058
  3. HUMIRA [Suspect]
     Route: 058
  4. ROSIGLITAZONE MALEATE [Concomitant]
     Indication: DIABETES MELLITUS
     Route: 048
     Dates: start: 20040101
  5. LANTUS [Concomitant]
     Indication: DIABETES MELLITUS
     Route: 050
     Dates: start: 20040101
  6. SIMVASTATIN [Concomitant]
     Indication: BLOOD CHOLESTEROL
     Route: 048
     Dates: start: 20020101
  7. PREDNISONE [Concomitant]
     Indication: CROHN'S DISEASE
     Dosage: 3 MG DAILY, DOSE VARIES AS NEEDED
     Route: 048
     Dates: start: 19860101
  8. ASPIRIN [Concomitant]
     Indication: CARDIOVASCULAR EVENT PROPHYLAXIS
     Route: 048
     Dates: start: 19930101
  9. RANITIDINE HYDROCHLORIDE [Concomitant]
     Indication: DYSPEPSIA
     Route: 048
     Dates: start: 20050101

REACTIONS (5)
  - CATARACT [None]
  - INCORRECT DOSE ADMINISTERED [None]
  - INJECTION SITE EXTRAVASATION [None]
  - INJECTION SITE IRRITATION [None]
  - INJECTION SITE PAIN [None]
